FAERS Safety Report 22188267 (Version 2)
Quarter: 2023Q2

REPORT INFORMATION
  Report Type: Report from Study
  Country: BG (occurrence: BG)
  Receive Date: 20230408
  Receipt Date: 20230426
  Transmission Date: 20230722
  Serious: Yes (Hospitalization)
  Sender: FDA-Public Use
  Company Number: BG-002147023-NVSC2023BG079677

PATIENT
  Age: 59 Year
  Sex: Male
  Weight: 70 kg

DRUGS (5)
  1. LEQVIO [Suspect]
     Active Substance: INCLISIRAN SODIUM
     Indication: Arteriosclerosis
     Dosage: 284 MG, (SINGLE SUBCUTANEOUS INJECTION INITIALLY, AGAIN AT 3 MONTHS AND THEN EVERY 6 MONTHS)
     Route: 058
     Dates: start: 20230302
  2. PANTOPRAZOLE SODIUM [Concomitant]
     Active Substance: PANTOPRAZOLE SODIUM
     Indication: Product used for unknown indication
     Dosage: 1 DOSAGE FORM, QD (1 TABLET IN THE MORNING)
     Route: 065
     Dates: start: 202301
  3. BISOPROLOL FUMARATE [Concomitant]
     Active Substance: BISOPROLOL FUMARATE
     Indication: Product used for unknown indication
     Dosage: 1 DOSAGE FORM, QD (1 TABLET IN THE MORNING)
     Route: 065
     Dates: start: 202301
  4. VIVACE [Concomitant]
     Indication: Product used for unknown indication
     Dosage: 1 DOSAGE FORM, BID (1 TABLET IN THE MORNING AND IN THE EVENING)
     Route: 065
     Dates: start: 202301
  5. ROSUVASTATIN [Concomitant]
     Active Substance: ROSUVASTATIN
     Indication: Product used for unknown indication
     Dosage: 1 DOSAGE FORM, (20/10), QD (1 TABLET IN THE EVENING)
     Route: 065
     Dates: start: 202301

REACTIONS (3)
  - Hypertension [Recovered/Resolved]
  - Hyperhidrosis [Recovering/Resolving]
  - Hypotension [Unknown]
